FAERS Safety Report 8907969 (Version 3)
Quarter: 2013Q3

REPORT INFORMATION
  Report Type: Spontaneous
  Country: US (occurrence: US)
  Receive Date: 20121114
  Receipt Date: 20130827
  Transmission Date: 20140515
  Serious: Yes (Other)
  Sender: FDA-Public Use
  Company Number: US-BAYER-2012-117782

PATIENT
  Age: 38 Year
  Sex: Female
  Weight: 95.24 kg

DRUGS (4)
  1. YAZ [Suspect]
     Indication: PREMENSTRUAL DYSPHORIC DISORDER
     Dosage: UNK
     Dates: start: 2009, end: 201004
  2. YAZ [Suspect]
     Indication: PREMENSTRUAL SYNDROME
  3. AZITHROMYCIN [Concomitant]
     Dosage: 250 MG, UNK
  4. MELOXICAM [Concomitant]
     Dosage: UNK
     Dates: start: 201003

REACTIONS (11)
  - Deep vein thrombosis [None]
  - Pulmonary embolism [None]
  - Thrombosis [None]
  - Cholecystectomy [None]
  - Injury [None]
  - Pain [None]
  - Emotional distress [None]
  - Pain in extremity [None]
  - Local swelling [None]
  - Performance status decreased [None]
  - Dyspnoea [None]
